FAERS Safety Report 25204776 (Version 1)
Quarter: 2025Q2

REPORT INFORMATION
  Report Type: Spontaneous
  Country: US (occurrence: US)
  Receive Date: 20250416
  Receipt Date: 20250416
  Transmission Date: 20250716
  Serious: Yes (Other)
  Sender: ROCHE
  Company Number: US-ROCHE-10000255226

PATIENT
  Sex: Female

DRUGS (13)
  1. XOLAIR PFS [Suspect]
     Active Substance: OMALIZUMAB
     Indication: Asthma
     Dosage: INJECT 75 MG SUBCUTANEOUSLY EVERY 14 DAYS (TOTAL DOSE OF 225 MG)
     Route: 058
  2. OXYCODONE [Concomitant]
     Active Substance: OXYCODONE
  3. ALBUTEROL [Concomitant]
     Active Substance: ALBUTEROL
  4. DESVENLAFAXI [Concomitant]
  5. ENTRESTO [Concomitant]
     Active Substance: SACUBITRIL\VALSARTAN
  6. LASIX [Concomitant]
     Active Substance: FUROSEMIDE
  7. METOPROLOL [Concomitant]
     Active Substance: METOPROLOL
  8. NORVASC [Concomitant]
     Active Substance: AMLODIPINE BESYLATE
  9. PRAMIPEXOLE [Concomitant]
     Active Substance: PRAMIPEXOLE
  10. PROTONIX [Concomitant]
     Active Substance: PANTOPRAZOLE SODIUM
  11. ROSUVASTATIN [Concomitant]
     Active Substance: ROSUVASTATIN
  12. SINGULAIR [Concomitant]
     Active Substance: MONTELUKAST SODIUM
  13. TRELEGY ELLI AEP [Concomitant]

REACTIONS (4)
  - COVID-19 [Not Recovered/Not Resolved]
  - Neuralgia [Not Recovered/Not Resolved]
  - Cardiac failure [Not Recovered/Not Resolved]
  - Depression [Recovered/Resolved]
